FAERS Safety Report 4829620-7 (Version None)
Quarter: 2005Q4

REPORT INFORMATION
  Report Type: 
  Country: None (occurrence: None)
  Receive Date: 20051116
  Receipt Date: 20051031
  Transmission Date: 20060501
  Serious: Yes (Other)
  Sender: FDA-Public Use
  Company Number: DE-BOEHRINGER INGELHEIM PHARMACEUTICALS, INC.-2005-BP-19521YA

PATIENT
  Sex: Male

DRUGS (3)
  1. OMNIC CAPSULES [Suspect]
     Indication: URINARY TRACT DISORDER
     Route: 048
     Dates: start: 20050616, end: 20050617
  2. CANDESARTAN CILEXETIL [Concomitant]
     Indication: HYPERTENSION
  3. DICLOFENAC SODIUM [Concomitant]

REACTIONS (6)
  - DIARRHOEA [None]
  - DIZZINESS [None]
  - DRUG INEFFECTIVE [None]
  - GASTROINTESTINAL PAIN [None]
  - HAEMATOCHEZIA [None]
  - HYPERTENSION [None]
